FAERS Safety Report 5280129-9 (Version None)
Quarter: 2007Q1

REPORT INFORMATION
  Report Type: 
  Country: None (occurrence: None)
  Receive Date: 20061229
  Receipt Date: 20061006
  Transmission Date: 20070707
  Serious: Yes (Other)
  Sender: FDA-Public Use
  Company Number: 2006UW19425

PATIENT

DRUGS (1)
  1. CRESTOR [Suspect]

REACTIONS (4)
  - DIARRHOEA [None]
  - DIZZINESS [None]
  - MYALGIA [None]
  - VISION BLURRED [None]
